FAERS Safety Report 23512097 (Version 1)
Quarter: 2024Q1

REPORT INFORMATION
  Report Type: Spontaneous
  Country: JP (occurrence: JP)
  Receive Date: 20240212
  Receipt Date: 20240212
  Transmission Date: 20240409
  Serious: Yes (Death, Hospitalization, Other)
  Sender: FDA-Public Use
  Company Number: JP-ALXN-202310JPN000514JP

PATIENT
  Sex: Male
  Weight: 64.5 kg

DRUGS (1)
  1. ULTOMIRIS [Suspect]
     Active Substance: RAVULIZUMAB-CWVZ
     Indication: Paroxysmal nocturnal haemoglobinuria
     Dosage: 3300 MILLIGRAM, ONCE
     Route: 041
     Dates: start: 20191001, end: 20231206

REACTIONS (4)
  - Intestinal perforation [Fatal]
  - Peritonitis [Fatal]
  - General physical health deterioration [Fatal]
  - Decreased activity [Unknown]
